FAERS Safety Report 24772553 (Version 1)
Quarter: 2024Q4

REPORT INFORMATION
  Report Type: Spontaneous
  Country: BG (occurrence: BG)
  Receive Date: 20241224
  Receipt Date: 20241224
  Transmission Date: 20250114
  Serious: Yes (Other)
  Sender: NOVITIUM PHARMA
  Company Number: BG-NOVITIUMPHARMA-2024BGNVP02967

PATIENT
  Age: 75 Year
  Sex: Male

DRUGS (5)
  1. BISOPROLOL FUMARATE [Suspect]
     Active Substance: BISOPROLOL FUMARATE
     Indication: Hypertension
     Dosage: HALF A TABLET.
  2. VALSARTAN [Suspect]
     Active Substance: VALSARTAN
     Indication: Hypertension
  3. ASPIRIN [Concomitant]
     Active Substance: ASPIRIN
     Indication: Anticoagulant therapy
  4. HYDROCHLOROTHIAZIDE\VALSARTAN [Concomitant]
     Active Substance: HYDROCHLOROTHIAZIDE\VALSARTAN
     Indication: Hypertension
     Dosage: 160MG/12.5MG
  5. Nadroparin-calcium [Concomitant]
     Indication: Hypertension

REACTIONS (2)
  - Nodular melanoma [Unknown]
  - Product contamination [Unknown]
